FAERS Safety Report 4684926-X (Version None)
Quarter: 2005Q2

REPORT INFORMATION
  Report Type: 
  Country: None (occurrence: None)
  Receive Date: 20050608
  Receipt Date: 20050607
  Transmission Date: 20051028
  Serious: Yes (Life-Threatening)
  Sender: FDA-Public Use
  Company Number: FR-RB-1725-2005

PATIENT
  Age: 35 Year
  Sex: Male

DRUGS (1)
  1. BUPRENORPHINE HCL [Suspect]
     Indication: DRUG DEPENDENCE
     Route: 042
     Dates: end: 20050322

REACTIONS (7)
  - ARTHRITIS [None]
  - ENDOCARDITIS [None]
  - INTENTIONAL MISUSE [None]
  - LUNG DISORDER [None]
  - PNEUMONIA STAPHYLOCOCCAL [None]
  - STAPHYLOCOCCAL SEPSIS [None]
  - TRICUSPID VALVE INCOMPETENCE [None]
